FAERS Safety Report 6713220-8 (Version None)
Quarter: 2010Q2

REPORT INFORMATION
  Report Type: 
  Country: None (occurrence: None)
  Receive Date: 20100506
  Receipt Date: 20100428
  Transmission Date: 20101027
  Serious: Yes (Hospitalization)
  Sender: FDA-Public Use
  Company Number: PHHO2010SK05433

PATIENT
  Sex: Male
  Weight: 81 kg

DRUGS (8)
  1. BLINDED ALISKIREN ALI+TAB+CF [Suspect]
     Indication: CARDIAC FAILURE
     Dosage: CODE NOT BROKEN
     Route: 048
     Dates: start: 20100324, end: 20100423
  2. BLINDED ENALAPRIL COMP-ENA+ [Suspect]
     Indication: CARDIAC FAILURE
     Dosage: CODE NOT BROKEN
     Route: 048
     Dates: start: 20100324, end: 20100423
  3. BLINDED NO TREATMENT RECEIVED NOMED [Suspect]
     Indication: CARDIAC FAILURE
     Dosage: CODE NOT BROKEN
     Route: 048
     Dates: start: 20100324, end: 20100423
  4. COMPARATOR ENALAPRIL [Suspect]
     Indication: CARDIAC FAILURE
     Dosage: 5 MG, BID
     Route: 048
     Dates: start: 20100129, end: 20100423
  5. COMPARATOR ENALAPRIL [Suspect]
     Dosage: 10 MG, BID
     Route: 048
     Dates: start: 20100213, end: 20100423
  6. ALISKIREN [Suspect]
     Indication: CARDIAC FAILURE
     Dosage: 150 MG, QD
     Route: 048
     Dates: start: 20100305, end: 20100423
  7. HYDROCHLOROTHIAZIDE [Concomitant]
  8. CARVEDILOL [Concomitant]

REACTIONS (4)
  - CAROTID ARTERY STENOSIS [None]
  - DIPLOPIA [None]
  - VERTEBROBASILAR INSUFFICIENCY [None]
  - VERTIGO [None]
